FAERS Safety Report 9607857 (Version 1)
Quarter: 2013Q4

REPORT INFORMATION
  Report Type: Spontaneous
  Country: US (occurrence: None)
  Receive Date: 20131008
  Receipt Date: 20131008
  Transmission Date: 20140711
  Serious: Yes (Life-Threatening, Other)
  Sender: FDA-Public Use
  Company Number: None

PATIENT
  Age: 61 Year
  Sex: Female
  Weight: 54.43 kg

DRUGS (1)
  1. FENTANYL [Suspect]
     Indication: PAIN
     Dosage: 1 PATCH/ EVERY 48 HOURS, --, APPLIED TO A SURFACE, USUALLY THE SKIN
     Route: 061
     Dates: start: 20130918, end: 20130919

REACTIONS (3)
  - Drug withdrawal syndrome [None]
  - Product adhesion issue [None]
  - Device physical property issue [None]
